FAERS Safety Report 12701242 (Version 2)
Quarter: 2016Q3

REPORT INFORMATION
  Report Type: Report from Study
  Country: IN (occurrence: IN)
  Receive Date: 20160831
  Receipt Date: 20160906
  Transmission Date: 20161109
  Serious: Yes (Hospitalization)
  Sender: FDA-Public Use
  Company Number: IN-ROCHE-1818416

PATIENT
  Age: 46 Year
  Sex: Male

DRUGS (6)
  1. OMALIZUMAB [Suspect]
     Active Substance: OMALIZUMAB
     Dosage: 300 MG, UNK
     Route: 058
     Dates: start: 20160818, end: 20160818
  2. OMALIZUMAB [Suspect]
     Active Substance: OMALIZUMAB
     Dosage: 150 MG, UNK
     Route: 058
     Dates: start: 20160619
  3. OMALIZUMAB [Suspect]
     Active Substance: OMALIZUMAB
     Dosage: 150 MG, UNK
     Route: 058
     Dates: start: 20160716
  4. OMALIZUMAB [Suspect]
     Active Substance: OMALIZUMAB
     Indication: URTICARIA
     Dosage: 150 MG, UNK
     Route: 058
     Dates: start: 20160523
  5. CETRIZINE [Concomitant]
     Active Substance: CETIRIZINE HYDROCHLORIDE
     Route: 065
     Dates: start: 20160819
  6. CETRIZINE [Concomitant]
     Active Substance: CETIRIZINE HYDROCHLORIDE
     Indication: URTICARIA
     Route: 065
     Dates: start: 20160818

REACTIONS (10)
  - Hypotension [Recovering/Resolving]
  - Pulse volume decreased [Recovering/Resolving]
  - Urticaria [Recovering/Resolving]
  - Cyanosis [Recovering/Resolving]
  - Headache [Recovering/Resolving]
  - Chest pain [Recovering/Resolving]
  - Myalgia [Recovering/Resolving]
  - Angioedema [Recovering/Resolving]
  - Dyspnoea [Recovering/Resolving]
  - Peripheral swelling [Recovering/Resolving]

NARRATIVE: CASE EVENT DATE: 20160818
